FAERS Safety Report 10216445 (Version 1)
Quarter: 2014Q2

REPORT INFORMATION
  Report Type: Spontaneous
  Country: FR (occurrence: FR)
  Receive Date: 20140604
  Receipt Date: 20140604
  Transmission Date: 20141212
  Serious: Yes (Death)
  Sender: FDA-Public Use
  Company Number: FR-SA-2014SA070190

PATIENT
  Age: 80 Year
  Sex: Male
  Weight: 60 kg

DRUGS (8)
  1. PLAVIX [Suspect]
     Indication: ARRHYTHMIA
     Route: 065
  2. ELIQUIS [Suspect]
     Indication: ATRIAL FIBRILLATION
     Route: 048
     Dates: start: 20140513
  3. PRAVASTATINE [Concomitant]
  4. COZAAR [Concomitant]
  5. PARIET [Concomitant]
  6. ALDACTONE [Concomitant]
  7. LASILIX [Concomitant]
  8. OMACOR [Concomitant]

REACTIONS (1)
  - Death [Fatal]
